FAERS Safety Report 15042202 (Version 2)
Quarter: 2019Q2

REPORT INFORMATION
  Report Type: Spontaneous
  Country: US (occurrence: US)
  Receive Date: 20180621
  Receipt Date: 20190529
  Transmission Date: 20190711
  Serious: No
  Sender: FDA-Public Use
  Company Number: US-PFIZER INC-2018251395

PATIENT
  Age: 7 Month
  Sex: Male

DRUGS (2)
  1. EUCRISA [Suspect]
     Active Substance: CRISABOROLE
     Indication: DERMATITIS ATOPIC
     Dosage: UNK, 2X/DAY (SMALL AMOUNT)
     Dates: start: 201807, end: 201812
  2. EUCRISA [Suspect]
     Active Substance: CRISABOROLE
     Indication: ECZEMA

REACTIONS (4)
  - Drug ineffective [Recovered/Resolved]
  - Off label use [Unknown]
  - Erythema [Unknown]
  - Product use issue [Unknown]

NARRATIVE: CASE EVENT DATE: 201807
